FAERS Safety Report 4300022-5 (Version None)
Quarter: 2004Q1

REPORT INFORMATION
  Report Type: 
  Country: None (occurrence: None)
  Receive Date: 20040219
  Receipt Date: 20040219
  Transmission Date: 20041129
  Serious: Yes (Hospitalization)
  Sender: FDA-Public Use
  Company Number: None

PATIENT
  Age: 64 Year
  Sex: Male
  Weight: 81.6475 kg

DRUGS (4)
  1. PLAVIX [Suspect]
     Indication: CEREBROVASCULAR ACCIDENT
     Dosage: 1 PO QD
     Route: 048
  2. ASPIRIN [Suspect]
     Indication: CEREBROVASCULAR ACCIDENT
     Dosage: 1 PO QD
     Route: 048
  3. SIMVASTATIN [Concomitant]
  4. LISINOPRIL [Concomitant]

REACTIONS (3)
  - HAEMATOCHEZIA [None]
  - INTESTINAL MASS [None]
  - METASTATIC NEOPLASM [None]
